FAERS Safety Report 16898358 (Version 1)
Quarter: 2019Q4

REPORT INFORMATION
  Report Type: Spontaneous
  Country: JP (occurrence: JP)
  Receive Date: 20191009
  Receipt Date: 20191009
  Transmission Date: 20200122
  Serious: Yes (Other)
  Sender: FDA-Public Use
  Company Number: JP-SUN PHARMACEUTICAL INDUSTRIES LTD-2019RR-223115

PATIENT
  Age: 8 Year
  Sex: Male
  Weight: 21.9 kg

DRUGS (6)
  1. PREDNISOLONE. [Suspect]
     Active Substance: PREDNISOLONE
     Indication: ASTHMA
     Dosage: UNK
     Route: 048
  2. SALMETEROL/FLUTICASONE [Suspect]
     Active Substance: FLUTICASONE PROPIONATE\SALMETEROL XINAFOATE
     Indication: ASTHMA
     Dosage: 100 MICROGRAM, QID
     Route: 065
  3. MOMETASONE [Suspect]
     Active Substance: MOMETASONE
     Indication: ASTHMA
     Dosage: UNK, BID
     Route: 065
  4. MONTELUKAST [Suspect]
     Active Substance: MONTELUKAST SODIUM
     Indication: ASTHMA
     Dosage: UNK
     Route: 065
  5. PREDNISOLONE. [Suspect]
     Active Substance: PREDNISOLONE
     Indication: EOSINOPHILIC RHINITIS
  6. EPINASTINE. [Suspect]
     Active Substance: EPINASTINE HYDROCHLORIDE
     Indication: ASTHMA
     Dosage: UNK
     Route: 065

REACTIONS (4)
  - Drug ineffective [Unknown]
  - Symptom recurrence [Unknown]
  - Pancytopenia [Recovering/Resolving]
  - Anaemia [Recovering/Resolving]
